FAERS Safety Report 18638410 (Version 1)
Quarter: 2020Q4

REPORT INFORMATION
  Report Type: Report from Study
  Country: US (occurrence: US)
  Receive Date: 20201218
  Receipt Date: 20201218
  Transmission Date: 20210114
  Serious: No
  Sender: FDA-Public Use
  Company Number: US-REGENERON PHARMACEUTICALS, INC.-2020-87221

PATIENT

DRUGS (1)
  1. EYLEA [Suspect]
     Active Substance: AFLIBERCEPT
     Indication: RETINAL NEOVASCULARISATION
     Dosage: 2 MG, EVERY 4 MONTHS IN THE RIGHT EYE
     Route: 031
     Dates: start: 20160131

REACTIONS (2)
  - Off label use [Unknown]
  - Product dose omission issue [Unknown]
